FAERS Safety Report 14649307 (Version 1)
Quarter: 2018Q1

REPORT INFORMATION
  Report Type: Spontaneous
  Country: DK (occurrence: DK)
  Receive Date: 20180316
  Receipt Date: 20180316
  Transmission Date: 20180509
  Serious: Yes (Hospitalization)
  Sender: FDA-Public Use
  Company Number: DK-SA-2018SA070128

PATIENT
  Age: 74 Year
  Sex: Male
  Weight: 94 kg

DRUGS (1)
  1. KLEXANE [Suspect]
     Active Substance: ENOXAPARIN
     Indication: ANTICOAGULANT THERAPY
     Route: 065
     Dates: start: 201607

REACTIONS (9)
  - Wound haemorrhage [Unknown]
  - Haematoma evacuation [Unknown]
  - Oedema peripheral [Unknown]
  - Joint swelling [Unknown]
  - Post procedural haematoma [Unknown]
  - Pyrexia [Unknown]
  - Skin warm [Unknown]
  - Nerve compression [Unknown]
  - Muscle haemorrhage [Unknown]

NARRATIVE: CASE EVENT DATE: 20160714
